FAERS Safety Report 9565603 (Version 2)
Quarter: 2014Q1

REPORT INFORMATION
  Report Type: Spontaneous
  Country: GB (occurrence: GB)
  Receive Date: 20130930
  Receipt Date: 20140131
  Transmission Date: 20141002
  Serious: Yes (Other)
  Sender: FDA-Public Use
  Company Number: GB-ACTAVIS-2013-16997

PATIENT
  Age: 64 Year
  Sex: Female

DRUGS (3)
  1. TRAMADOL (UNKNOWN) [Suspect]
     Indication: PAIN
     Dosage: UNK; 1-2 TABLETS UP TO FOUR TIMES DAILY
     Route: 048
     Dates: start: 2013
  2. DOSULEPIN HYDROCHLORIDE [Interacting]
     Indication: DEPRESSION
     Dosage: 75 MG, DAILY
     Route: 048
     Dates: start: 2013
  3. GABAPENTIN [Concomitant]
     Indication: PRODUCT USED FOR UNKNOWN INDICATION
     Dosage: UNK
     Route: 065

REACTIONS (3)
  - Dizziness [Recovered/Resolved]
  - Vomiting [Recovered/Resolved]
  - Labelled drug-drug interaction medication error [Recovered/Resolved]
